FAERS Safety Report 7889947-1 (Version None)
Quarter: 2011Q4

REPORT INFORMATION
  Report Type: 
  Country: None (occurrence: None)
  Receive Date: 20111103
  Receipt Date: 20111031
  Transmission Date: 20120403
  Serious: Yes (Other)
  Sender: FDA-Public Use
  Company Number: JP-ABBOTT-09P-087-0602452-00

PATIENT
  Age: 80 Year
  Sex: Female
  Weight: 55 kg

DRUGS (9)
  1. THIAMYLAL [Suspect]
     Indication: INDUCTION OF ANAESTHESIA
  2. ATROPINE [Concomitant]
  3. ATROPINE [Suspect]
     Indication: PRODUCT USED FOR UNKNOWN INDICATION
     Route: 042
  4. REMIFENTANIL [Suspect]
     Indication: INDUCTION AND MAINTENANCE OF ANAESTHESIA
     Dosage: 0.5 MG/KG
  5. ROCURONIUM BROMIDE [Suspect]
     Indication: INDUCTION OF ANAESTHESIA
  6. ANTIARRHYTHMICS [Concomitant]
     Indication: PRODUCT USED FOR UNKNOWN INDICATION
  7. DOPAMINE HCL [Concomitant]
     Indication: PRODUCT USED FOR UNKNOWN INDICATION
     Dosage: 3 MCGKG/MIN
     Route: 042
  8. SEVOFLURANE [Suspect]
     Indication: MAINTENANCE OF ANAESTHESIA
     Dosage: 0.8-1%
     Route: 055
  9. OXYGEN [Concomitant]
     Indication: MAINTENANCE OF ANAESTHESIA
     Route: 055

REACTIONS (4)
  - VENTRICULAR ARRHYTHMIA [None]
  - TORSADE DE POINTES [None]
  - BRADYCARDIA [None]
  - LONG QT SYNDROME [None]
